FAERS Safety Report 25785411 (Version 2)
Quarter: 2025Q4

REPORT INFORMATION
  Report Type: Report from Study
  Country: CA (occurrence: None)
  Receive Date: 20250910
  Receipt Date: 20251125
  Transmission Date: 20260117
  Serious: Yes (Hospitalization)
  Sender: CHIESI
  Company Number: CA-CHIESI-2025CHF06263

PATIENT
  Age: 66 Year
  Sex: Male
  Weight: 52.3 kg

DRUGS (3)
  1. DEFERIPRONE [Suspect]
     Active Substance: DEFERIPRONE
     Indication: Sickle cell disease
     Dosage: 2000 MILLIGRAM, BID
     Dates: start: 20240126
  2. DEFERASIROX [Concomitant]
     Active Substance: DEFERASIROX
     Indication: Product used for unknown indication
     Dosage: 1440 MILLIGRAM, QD
  3. DILAUDID [Concomitant]
     Active Substance: HYDROMORPHONE HYDROCHLORIDE
     Indication: Product used for unknown indication
     Dosage: 6 MILLIGRAM, QD

REACTIONS (1)
  - Ill-defined disorder [Recovered/Resolved]
